FAERS Safety Report 5199466-1 (Version None)
Quarter: 2006Q4

REPORT INFORMATION
  Report Type: 
  Country: None (occurrence: None)
  Receive Date: 20061229
  Receipt Date: 20061214
  Transmission Date: 20070319
  Serious: Yes (Death, Hospitalization)
  Sender: FDA-Public Use
  Company Number: 2006AL003961

PATIENT
  Age: 77 Year
  Sex: Male

DRUGS (14)
  1. OXYCODONE HYDROCHLORIDE [Suspect]
     Indication: PAIN
     Dosage: 5 MG, PRN, PO
     Route: 048
     Dates: start: 20050909, end: 20051113
  2. IPILIMUMAB [Concomitant]
  3. BMS 734019 (MDX 1379) [Concomitant]
  4. SENOKOT [Concomitant]
  5. LASIX [Concomitant]
  6. HYDROCHLOROTHIAZIDE [Concomitant]
  7. PLACEBO [Concomitant]
  8. OXYCONTIN [Concomitant]
  9. COUMADIN [Concomitant]
  10. TRAZODONE HCL [Concomitant]
  11. SODIUM CHLORIDE [Concomitant]
  12. VISTARIL [Concomitant]
  13. WARFARIN SODIUM [Concomitant]
  14. TOPROL-XL [Concomitant]

REACTIONS (22)
  - AGGRESSION [None]
  - ATRIAL FIBRILLATION [None]
  - CARDIOMEGALY [None]
  - CONDITION AGGRAVATED [None]
  - CONFUSIONAL STATE [None]
  - DEHYDRATION [None]
  - DELIRIUM [None]
  - DILATATION ATRIAL [None]
  - DILATATION VENTRICULAR [None]
  - EJECTION FRACTION DECREASED [None]
  - ELECTROCARDIOGRAM POOR R-WAVE PROGRESSION [None]
  - ELECTROCARDIOGRAM Q WAVES [None]
  - ELECTROCARDIOGRAM ST-T CHANGE [None]
  - FALL [None]
  - HEART RATE INCREASED [None]
  - PERICARDIAL EFFUSION [None]
  - PITTING OEDEMA [None]
  - PULMONARY HYPERTENSION [None]
  - QRS AXIS ABNORMAL [None]
  - URINARY RETENTION [None]
  - VENTRICULAR EXTRASYSTOLES [None]
  - VENTRICULAR HYPOKINESIA [None]
